FAERS Safety Report 8496399-X (Version None)
Quarter: 2012Q3

REPORT INFORMATION
  Report Type: 
  Country: None (occurrence: None)
  Receive Date: 20120709
  Receipt Date: 20120628
  Transmission Date: 20120928
  Serious: Yes (Hospitalization, Other)
  Sender: FDA-Public Use
  Company Number: JP-VERTEX PHARMACEUTICALS INC.-AE-2012-003623

PATIENT
  Age: 62 Year
  Sex: Male

DRUGS (13)
  1. REBETOL [Concomitant]
     Indication: HEPATITIS C
     Route: 048
     Dates: start: 20120126, end: 20120229
  2. REBETOL [Concomitant]
     Route: 048
     Dates: start: 20120331, end: 20120406
  3. TELAVIC (TELAPREVIR) [Suspect]
     Route: 048
     Dates: start: 20120324, end: 20120406
  4. CLOBETASOL PROPIONATE [Concomitant]
     Route: 061
     Dates: start: 20120128
  5. REBETOL [Concomitant]
     Route: 048
     Dates: start: 20120301, end: 20120307
  6. REBETOL [Concomitant]
     Route: 048
     Dates: start: 20120308
  7. REBETOL [Concomitant]
     Route: 048
     Dates: start: 20120315, end: 20120322
  8. REBETOL [Concomitant]
     Route: 048
     Dates: start: 20120324, end: 20120330
  9. TELAVIC (TELAPREVIR) [Suspect]
     Route: 048
     Dates: start: 20120308, end: 20120321
  10. PEG-INTRON [Concomitant]
     Route: 058
     Dates: start: 20120331
  11. TELAVIC (TELAPREVIR) [Suspect]
     Indication: HEPATITIS C
     Route: 048
     Dates: start: 20120126, end: 20120307
  12. REBETOL [Concomitant]
     Route: 048
     Dates: start: 20120419
  13. PEG-INTRON [Concomitant]
     Route: 058
     Dates: start: 20120126

REACTIONS (6)
  - MALAISE [None]
  - RASH [None]
  - RENAL IMPAIRMENT [None]
  - DECREASED APPETITE [None]
  - ANAEMIA [None]
  - HAEMOGLOBIN DECREASED [None]
